FAERS Safety Report 5444020-7 (Version None)
Quarter: 2007Q3

REPORT INFORMATION
  Report Type: 
  Country: None (occurrence: None)
  Receive Date: 20070831
  Receipt Date: 20070821
  Transmission Date: 20080115
  Serious: Yes (Hospitalization)
  Sender: FDA-Public Use
  Company Number: 2007US002009

PATIENT
  Age: 34 Year
  Sex: Female
  Weight: 89.8 kg

DRUGS (24)
  1. PROGRAF [Suspect]
     Indication: PROPHYLAXIS AGAINST TRANSPLANT REJECTION
     Dosage: SEE IMAGE
     Route: 048
     Dates: start: 20051104, end: 20051117
  2. PROGRAF [Suspect]
     Indication: PROPHYLAXIS AGAINST TRANSPLANT REJECTION
     Dosage: SEE IMAGE
     Route: 048
     Dates: start: 20051117, end: 20051118
  3. PROGRAF [Suspect]
     Indication: PROPHYLAXIS AGAINST TRANSPLANT REJECTION
     Dosage: SEE IMAGE
     Route: 048
     Dates: start: 20051118, end: 20051121
  4. PROGRAF [Suspect]
     Indication: PROPHYLAXIS AGAINST TRANSPLANT REJECTION
     Dosage: SEE IMAGE
     Route: 048
     Dates: start: 20051121, end: 20051207
  5. PROGRAF [Suspect]
     Indication: PROPHYLAXIS AGAINST TRANSPLANT REJECTION
     Dosage: SEE IMAGE
     Route: 048
     Dates: start: 20051207, end: 20060224
  6. PROGRAF [Suspect]
     Indication: PROPHYLAXIS AGAINST TRANSPLANT REJECTION
     Dosage: SEE IMAGE
     Route: 048
     Dates: start: 20060224, end: 20060509
  7. PROGRAF [Suspect]
     Indication: PROPHYLAXIS AGAINST TRANSPLANT REJECTION
     Dosage: SEE IMAGE
     Route: 048
     Dates: start: 20060509, end: 20060823
  8. PROGRAF [Suspect]
     Indication: PROPHYLAXIS AGAINST TRANSPLANT REJECTION
     Dosage: SEE IMAGE
     Route: 048
     Dates: start: 20060823
  9. PREDNISONE TAB [Concomitant]
  10. AZATHIOPRINE [Concomitant]
  11. NYSTATIN [Concomitant]
  12. CALCIUM CARBONATE [Concomitant]
  13. CALCITRIOL [Concomitant]
  14. METOCLOPRAMIDE HYDROCHLORIDE [Concomitant]
  15. MAGNESIUM OXIDE [Concomitant]
  16. MULTIVITAMIN [Concomitant]
  17. MORPHINE SULFATE [Concomitant]
  18. ZOLPIDEM TARTRATE [Concomitant]
  19. FLUTICASONE W/SALMETEROL       (SALMETEROL, FLUTICASONE) [Concomitant]
  20. DOMPERIDONE            (DOMPERIDONE) [Concomitant]
  21. DAPSONE [Concomitant]
  22. ESOMEPRAZOLE MAGNESIUM [Concomitant]
  23. ACYCLOVIR [Concomitant]
  24. HYDROCODONE W/ACETAMINOPHEN (HYDROCODONE BITARTRATE) [Concomitant]

REACTIONS (4)
  - DIARRHOEA [None]
  - LUNG TRANSPLANT REJECTION [None]
  - NAUSEA [None]
  - VOMITING [None]
